FAERS Safety Report 11628183 (Version 1)
Quarter: 2015Q4

REPORT INFORMATION
  Report Type: Spontaneous
  Country: US (occurrence: None)
  Receive Date: 20151013
  Receipt Date: 20151013
  Transmission Date: 20160304
  Serious: Yes (Life-Threatening, Hospitalization, Disabling)
  Sender: FDA-Public Use
  Company Number: None

PATIENT
  Age: 38 Year
  Sex: Female
  Weight: 54.43 kg

DRUGS (2)
  1. XARELTO [Concomitant]
     Active Substance: RIVAROXABAN
  2. YASMIN [Suspect]
     Active Substance: DROSPIRENONE\ETHINYL ESTRADIOL
     Indication: CONTRACEPTION
     Route: 048
     Dates: start: 20150501, end: 20150805

REACTIONS (6)
  - Palpitations [None]
  - Pain in extremity [None]
  - Dizziness [None]
  - Pulmonary embolism [None]
  - Chest pain [None]
  - Deep vein thrombosis [None]

NARRATIVE: CASE EVENT DATE: 20150805
